FAERS Safety Report 10329102 (Version 7)
Quarter: 2015Q3

REPORT INFORMATION
  Report Type: Spontaneous
  Country: US (occurrence: US)
  Receive Date: 20140721
  Receipt Date: 20150715
  Transmission Date: 20151125
  Serious: Yes (Hospitalization, Disabling, Other)
  Sender: FDA-Public Use
  Company Number: US-009507513-1407USA008637

PATIENT
  Sex: Female
  Weight: 65.76 kg

DRUGS (4)
  1. FOSAMAX [Suspect]
     Active Substance: ALENDRONATE SODIUM
     Indication: OSTEOPENIA
  2. BONIVA [Suspect]
     Active Substance: IBANDRONATE SODIUM
     Indication: OSTEOPOROSIS
     Dosage: 70 MG, UNK
     Route: 048
     Dates: start: 2005, end: 2011
  3. BONIVA [Suspect]
     Active Substance: IBANDRONATE SODIUM
     Indication: OSTEOPENIA
  4. FOSAMAX [Suspect]
     Active Substance: ALENDRONATE SODIUM
     Indication: OSTEOPOROSIS
     Dosage: 70 MG, UNK
     Route: 048
     Dates: start: 2001, end: 2005

REACTIONS (9)
  - Intramedullary rod insertion [Unknown]
  - Muscular weakness [Unknown]
  - Wrist fracture [Unknown]
  - Femur fracture [Recovering/Resolving]
  - Intramedullary rod insertion [Not Recovered/Not Resolved]
  - Blood cholesterol increased [Unknown]
  - Fall [Unknown]
  - Depression [Unknown]
  - Wrist fracture [Not Recovered/Not Resolved]

NARRATIVE: CASE EVENT DATE: 2007
